FAERS Safety Report 26071401 (Version 1)
Quarter: 2025Q4

REPORT INFORMATION
  Report Type: Spontaneous
  Country: US (occurrence: US)
  Receive Date: 20251120
  Receipt Date: 20251120
  Transmission Date: 20260117
  Serious: No
  Sender: SEPTODONT
  Company Number: US-SEPTODONT-2025019968

PATIENT
  Age: 22 Year
  Sex: Male
  Weight: 89 kg

DRUGS (4)
  1. EPINEPHRINE BITARTRATE\LIDOCAINE HYDROCHLORIDE [Suspect]
     Active Substance: EPINEPHRINE BITARTRATE\LIDOCAINE HYDROCHLORIDE
     Indication: Dental local anaesthesia
     Dosage: 5.5 CARPULES OF 1.7 ML EACH.
     Route: 004
     Dates: start: 20250823, end: 20250823
  2. 4% articaine 1:100,000 epi [Concomitant]
     Indication: Local anaesthesia
     Dosage: 5 CARPULES OF 1.7ML EACH CARPULE.
     Route: 004
     Dates: start: 20250823, end: 20250823
  3. NITROUS OXIDE [Concomitant]
     Active Substance: NITROUS OXIDE
     Indication: Anxiolytic therapy
     Dosage: 40 MINS.
     Route: 055
     Dates: start: 20250823, end: 20250823
  4. AMOXICILLIN [Concomitant]
     Active Substance: AMOXICILLIN
     Indication: Product used for unknown indication

REACTIONS (1)
  - Drug ineffective [Unknown]

NARRATIVE: CASE EVENT DATE: 20250823
